FAERS Safety Report 8900191 (Version 1)
Quarter: 2012Q4

REPORT INFORMATION
  Report Type: 
  Country: DE (occurrence: DE)
  Receive Date: 20121109
  Receipt Date: 20121109
  Transmission Date: 20130627
  Serious: Yes (Disabling)
  Sender: FDA-Public Use
  Company Number: DE-BAYER-2012-117405

PATIENT
  Age: 39 Year
  Sex: Male
  Weight: 88 kg

DRUGS (2)
  1. MAGNEVIST [Suspect]
     Indication: COMPUTERIZED TOMOGRAM
     Dosage: 32 ml, ONCE
     Route: 042
     Dates: start: 20110114, end: 20110114
  2. DOTAREM [Suspect]
     Indication: COMPUTERIZED TOMOGRAM
     Dosage: 18 ml, ONCE
     Route: 042
     Dates: start: 20110415, end: 20110415

REACTIONS (4)
  - Nephrogenic systemic fibrosis [Recovered/Resolved with Sequelae]
  - Polyneuropathy [Recovered/Resolved with Sequelae]
  - Cardiac disorder [Recovered/Resolved with Sequelae]
  - Skin fibrosis [Recovered/Resolved with Sequelae]
